FAERS Safety Report 16971140 (Version 3)
Quarter: 2020Q3

REPORT INFORMATION
  Report Type: Spontaneous
  Country: JP (occurrence: JP)
  Receive Date: 20191029
  Receipt Date: 20200706
  Transmission Date: 20201102
  Serious: Yes (Death, Other)
  Sender: FDA-Public Use
  Company Number: JP-SHIRE-JP201936521

PATIENT

DRUGS (1)
  1. ELAPRASE [Suspect]
     Active Substance: IDURSULFASE
     Indication: MUCOPOLYSACCHARIDOSIS II
     Dosage: UNK
     Route: 041

REACTIONS (3)
  - Death [Fatal]
  - Disease progression [Unknown]
  - Antibody test abnormal [Unknown]
